FAERS Safety Report 9527973 (Version 1)
Quarter: 2013Q1

REPORT INFORMATION
  Report Type: Spontaneous
  Country: US (occurrence: None)
  Receive Date: 20130313
  Receipt Date: 20130313
  Transmission Date: 20140127
  Serious: No
  Sender: FDA-Public Use
  Company Number: 1000028390

PATIENT
  Age: 37 Year
  Sex: Female

DRUGS (9)
  1. SAVELLA [Suspect]
     Indication: NEURALGIA
     Dosage: 12.5 MG (12.5 MG,1 IN 1 D),ORAL
     Route: 048
     Dates: start: 201108, end: 201110
  2. OXYCONTIN (OXYCODONE HYDROCHLORIDE) (OXYCODONE HYDROCHRLORIDE) [Concomitant]
  3. PERCOCET (OXYCODONE, ACETAMINOPHEN) (OXYCODONE, ACETAMINOPHEN) [Concomitant]
  4. XANAX (ALPRAZOLAM) (ALPRAZOLAM) [Concomitant]
  5. PROZAC (FLUOXETINE HYDROCHLORIDE) FLUOXETINE HYDROCHLORIDE) [Concomitant]
  6. VISTARIL (HYDROXYZINE) (HYDROXYZINE) [Concomitant]
  7. PIROXICAM (PIROXICAM) (PIROXICAM) [Concomitant]
  8. SOMA (CARISOPRODOL) (CARISOPRODOL) [Concomitant]
  9. AMBIEN (ZOLPIDEM TARTRATE) (ZOLPIDEM TARTRATE) [Concomitant]

REACTIONS (2)
  - Weight increased [None]
  - Off label use [None]
